FAERS Safety Report 9803604 (Version 1)
Quarter: 2014Q1

REPORT INFORMATION
  Report Type: Spontaneous
  Country: US (occurrence: US)
  Receive Date: 20140108
  Receipt Date: 20140108
  Transmission Date: 20141002
  Serious: No
  Sender: FDA-Public Use
  Company Number: US-GLAXOSMITHKLINE-A1011870A

PATIENT
  Age: 57 Year
  Sex: Female

DRUGS (8)
  1. LOVAZA [Suspect]
     Indication: BLOOD TRIGLYCERIDES INCREASED
     Dosage: 2CAP TWICE PER DAY
     Route: 048
     Dates: start: 20121108
  2. DIOVAN [Concomitant]
  3. BYSTOLIC [Concomitant]
  4. ADVAIR DISKUS [Concomitant]
  5. VITAMIN D [Concomitant]
  6. PROVENTIL INHALER [Concomitant]
  7. MULTI VITAMIN [Concomitant]
  8. TRAZODONE [Concomitant]
     Dates: end: 20130201

REACTIONS (3)
  - Hair colour changes [Not Recovered/Not Resolved]
  - Off label use [Unknown]
  - Incorrect dosage administered [Unknown]
